FAERS Safety Report 6999459-5 (Version None)
Quarter: 2010Q3

REPORT INFORMATION
  Report Type: 
  Country: None (occurrence: None)
  Receive Date: 20100920
  Receipt Date: 20071119
  Transmission Date: 20110219
  Serious: Yes (Other)
  Sender: FDA-Public Use
  Company Number: US-ASTRAZENECA-2007UW18314

PATIENT
  Age: 33 Year
  Sex: Female
  Weight: 72.1 kg

DRUGS (10)
  1. SEROQUEL [Suspect]
     Indication: SLEEP DISORDER
     Dosage: 25 MG TO 400 MG
     Route: 048
     Dates: start: 20030930
  2. SEROQUEL [Suspect]
     Route: 048
     Dates: start: 20040414, end: 20060920
  3. PAXIL [Concomitant]
     Dates: start: 20020731
  4. LORATADINE [Concomitant]
     Dates: start: 20030905
  5. METOCLOPRAM [Concomitant]
     Dates: start: 20021231
  6. PROTONIX [Concomitant]
     Dates: start: 20020826
  7. LEVOXYL [Concomitant]
     Dates: start: 20020826
  8. METOPROLOL [Concomitant]
     Dates: start: 20020718
  9. ALLEGRA [Concomitant]
     Dates: start: 20021009
  10. BIAXIN [Concomitant]
     Dates: start: 20030909

REACTIONS (2)
  - PANCREATITIS [None]
  - PANCREATITIS ACUTE [None]
